FAERS Safety Report 7689246-7 (Version None)
Quarter: 2011Q3

REPORT INFORMATION
  Report Type: 
  Country: None (occurrence: None)
  Receive Date: 20110811
  Receipt Date: 20100729
  Transmission Date: 20111222
  Serious: Yes (Hospitalization, Other)
  Sender: FDA-Public Use
  Company Number: 2010AP001482

PATIENT
  Age: 67 Year
  Sex: Male

DRUGS (3)
  1. LITHIUM CARBONATE [Suspect]
     Indication: BIPOLAR DISORDER
     Dates: start: 19960101
  2. BENZTROPINE MESYLATE [Concomitant]
  3. NIFEDIPINE [Concomitant]

REACTIONS (15)
  - HYPONATRAEMIA [None]
  - TREMOR [None]
  - HYPERPARATHYROIDISM [None]
  - NEPHROGENIC DIABETES INSIPIDUS [None]
  - GAIT DISTURBANCE [None]
  - HYPERCALCAEMIA [None]
  - TOXICITY TO VARIOUS AGENTS [None]
  - PYREXIA [None]
  - CONFUSIONAL STATE [None]
  - HALLUCINATION, VISUAL [None]
  - THYROTOXIC CRISIS [None]
  - THERAPY CESSATION [None]
  - ATRIAL FIBRILLATION [None]
  - PSYCHOTIC DISORDER [None]
  - THYROIDITIS [None]
